FAERS Safety Report 4907389-5 (Version None)
Quarter: 2006Q1

REPORT INFORMATION
  Report Type: 
  Country: None (occurrence: None)
  Receive Date: 20060208
  Receipt Date: 20060208
  Transmission Date: 20060701
  Serious: Yes (Other)
  Sender: FDA-Public Use
  Company Number: None

PATIENT
  Age: 74 Year
  Sex: Female
  Weight: 20.4119 kg

DRUGS (1)
  1. ACTIVASE 1 MG/ML GENENTEC [Suspect]
     Indication: THROMBOEMBOLIC STROKE
     Dosage: 45 MG ONCE IV DRIP
     Route: 041
     Dates: start: 20060202, end: 20060202

REACTIONS (2)
  - INFUSION RELATED REACTION [None]
  - URTICARIA [None]
